FAERS Safety Report 8150880-1 (Version None)
Quarter: 2012Q1

REPORT INFORMATION
  Report Type: 
  Country: None (occurrence: None)
  Receive Date: 20120220
  Receipt Date: 20120215
  Transmission Date: 20120608
  Serious: Yes (Other)
  Sender: FDA-Public Use
  Company Number: PHHY2012AU004635

PATIENT
  Sex: Female
  Weight: 41.5 kg

DRUGS (6)
  1. PREDNISOLONE [Concomitant]
     Dosage: 5 MG, TWICE DAILY
     Route: 048
  2. LIPITOR [Concomitant]
     Dosage: 40 MG, ONE TABLET AT NIGHT
     Route: 048
  3. SLOW-K [Concomitant]
     Dosage: 600 MG, TWICE DAILY
     Route: 048
  4. NEXIUM [Concomitant]
     Dosage: 20 G, ONE TABLET AT NIGHT
     Route: 048
  5. ZOLEDRONOC ACID [Suspect]
     Dosage: 5 MG, YEARLY
     Route: 042
     Dates: start: 20110301
  6. IMDUR [Concomitant]
     Dosage: 60 MG, ONE TABLET AT NIGHT
     Route: 048

REACTIONS (5)
  - DIARRHOEA [None]
  - LETHARGY [None]
  - MALARIA [None]
  - VOMITING [None]
  - PYREXIA [None]
